FAERS Safety Report 4377363-9 (Version None)
Quarter: 2004Q2

REPORT INFORMATION
  Report Type: 
  Country: None (occurrence: None)
  Receive Date: 20040615
  Receipt Date: 20040609
  Transmission Date: 20050107
  Serious: Yes (Hospitalization)
  Sender: FDA-Public Use
  Company Number: 200411798EU

PATIENT
  Age: 74 Year
  Sex: Male

DRUGS (9)
  1. DAONIL [Suspect]
     Indication: DIABETES MELLITUS
     Route: 048
     Dates: start: 20040428, end: 20040511
  2. LIPITOR [Suspect]
     Indication: HYPERCHOLESTEROLAEMIA
     Route: 048
     Dates: start: 20020511, end: 20040511
  3. CORDARONE [Suspect]
     Indication: ATRIAL FIBRILLATION
     Route: 048
     Dates: start: 20040428, end: 20040511
  4. MAREVAN [Concomitant]
     Route: 048
  5. DIGITRIN [Concomitant]
     Route: 048
  6. DIURAL [Concomitant]
     Indication: CARDIAC FAILURE
     Route: 048
  7. KALEORID [Concomitant]
     Indication: HYPOKALAEMIA
  8. LISINOPRIL [Concomitant]
     Indication: HYPERTENSION
     Route: 048
  9. SELO-ZOK [Concomitant]
     Indication: ATRIAL FIBRILLATION
     Route: 048

REACTIONS (4)
  - ATRIAL FIBRILLATION [None]
  - DYSPNOEA [None]
  - HEPATIC FAILURE [None]
  - RENAL FAILURE [None]
